FAERS Safety Report 19704136 (Version 1)
Quarter: 2021Q3

REPORT INFORMATION
  Report Type: Spontaneous
  Country: US (occurrence: US)
  Receive Date: 20210814
  Receipt Date: 20210814
  Transmission Date: 20211014
  Serious: No
  Sender: FDA-Public Use
  Company Number: None

PATIENT
  Age: 71 Year
  Sex: Female
  Weight: 108 kg

DRUGS (12)
  1. A?REDS [Concomitant]
  2. CALCIUM [Concomitant]
     Active Substance: CALCIUM
  3. XANAX [Concomitant]
     Active Substance: ALPRAZOLAM
  4. PEPCID [Concomitant]
     Active Substance: FAMOTIDINE
  5. MULTIVITAMIN [Concomitant]
     Active Substance: VITAMINS
  6. RECLAST [Suspect]
     Active Substance: ZOLEDRONIC ACID
     Indication: OSTEOPOROSIS
     Dosage: ?          QUANTITY:1 DOSE;?
     Route: 042
     Dates: start: 20210812, end: 20210812
  7. VITAMIN B12 [Concomitant]
     Active Substance: CYANOCOBALAMIN
  8. THYROID [Concomitant]
     Active Substance: LEVOTHYROXINE\LIOTHYRONINE
  9. VITAMIN D3 [Concomitant]
     Active Substance: CHOLECALCIFEROL
  10. OLIVE LEAF [Concomitant]
  11. BUSPAR [Concomitant]
     Active Substance: BUSPIRONE HYDROCHLORIDE
  12. IRON [Concomitant]
     Active Substance: IRON

REACTIONS (3)
  - Pyrexia [None]
  - Feeling cold [None]
  - Chills [None]

NARRATIVE: CASE EVENT DATE: 20210813
